FAERS Safety Report 9445759 (Version 1)
Quarter: 2013Q3

REPORT INFORMATION
  Report Type: Spontaneous
  Country: CH (occurrence: CH)
  Receive Date: 20130807
  Receipt Date: 20130807
  Transmission Date: 20140515
  Serious: Yes (Hospitalization, Other)
  Sender: FDA-Public Use
  Company Number: CH-INCYTE CORPORATION-2013IN001765

PATIENT
  Sex: Female

DRUGS (2)
  1. JAKAVI [Suspect]
     Indication: SPLENOMEGALY
     Dosage: 20 MG, QD
     Route: 065
  2. JAKAVI [Suspect]
     Dosage: 15 MG, QD
     Route: 065

REACTIONS (4)
  - Splenic rupture [Recovered/Resolved]
  - Bone marrow failure [Recovering/Resolving]
  - Gamma-glutamyltransferase increased [Unknown]
  - Blood alkaline phosphatase increased [Unknown]
